FAERS Safety Report 19058686 (Version 1)
Quarter: 2021Q1

REPORT INFORMATION
  Report Type: Report from Study
  Country: US (occurrence: US)
  Receive Date: 20210325
  Receipt Date: 20210325
  Transmission Date: 20210420
  Serious: Yes (Death)
  Sender: FDA-Public Use
  Company Number: US-ASTRAZENECA-2021A188998

PATIENT
  Age: 26099 Day
  Sex: Female

DRUGS (16)
  1. XARELTO [Concomitant]
     Active Substance: RIVAROXABAN
  2. HYDROCODONE?ACETAMINOPHEN [Concomitant]
     Active Substance: ACETAMINOPHEN\HYDROCODONE
  3. B12 ACTIVE [Concomitant]
  4. PANTOPRAZOLE SODIUM. [Concomitant]
     Active Substance: PANTOPRAZOLE SODIUM
  5. POTASSIUM CHLORIDE. [Concomitant]
     Active Substance: POTASSIUM CHLORIDE
  6. MULTIVITAMINS [Concomitant]
     Active Substance: VITAMINS
  7. ASPIR 81 [Concomitant]
     Active Substance: ASPIRIN
  8. LOVASTATIN. [Concomitant]
     Active Substance: LOVASTATIN
  9. LOSARTAN POTASSIUM. [Concomitant]
     Active Substance: LOSARTAN POTASSIUM
  10. METOPROLOL SUCCINATE. [Concomitant]
     Active Substance: METOPROLOL SUCCINATE
  11. FUROSEMIDE. [Concomitant]
     Active Substance: FUROSEMIDE
  12. TAGRISSO [Suspect]
     Active Substance: OSIMERTINIB
     Indication: LUNG NEOPLASM MALIGNANT
     Route: 048
     Dates: start: 20200417
  13. DIGOXIN. [Concomitant]
     Active Substance: DIGOXIN
  14. VITAMIN D3 [Concomitant]
     Active Substance: CHOLECALCIFEROL
  15. NITROSTAT [Concomitant]
     Active Substance: NITROGLYCERIN
  16. GABAPENTIN. [Concomitant]
     Active Substance: GABAPENTIN

REACTIONS (1)
  - Death [Fatal]

NARRATIVE: CASE EVENT DATE: 20210224
